FAERS Safety Report 24708457 (Version 1)
Quarter: 2024Q4

REPORT INFORMATION
  Report Type: Report from Study
  Country: IN (occurrence: IN)
  Receive Date: 20241207
  Receipt Date: 20241207
  Transmission Date: 20250115
  Serious: Yes (Hospitalization)
  Sender: ROCHE
  Company Number: IN-ROCHE-10000048801

PATIENT
  Age: 67 Year
  Sex: Male
  Weight: 62.3 kg

DRUGS (2)
  1. TECENTRIQ [Suspect]
     Active Substance: ATEZOLIZUMAB
     Indication: Hepatocellular carcinoma
     Dosage: 13TH CYCLE -28TH DAY
     Route: 042
     Dates: start: 20231228
  2. TECENTRIQ [Suspect]
     Active Substance: ATEZOLIZUMAB
     Route: 042
     Dates: start: 20231228

REACTIONS (3)
  - Off label use [Unknown]
  - Hypertension [Unknown]
  - Upper respiratory tract congestion [Unknown]
